FAERS Safety Report 7843926-9 (Version None)
Quarter: 2011Q4

REPORT INFORMATION
  Report Type: 
  Country: None (occurrence: None)
  Receive Date: 20111025
  Receipt Date: 20111013
  Transmission Date: 20120403
  Serious: Yes (Hospitalization)
  Sender: FDA-Public Use
  Company Number: US-BAYER-2010-007112

PATIENT
  Age: 24 Year
  Sex: Female
  Weight: 84 kg

DRUGS (2)
  1. YASMIN [Suspect]
     Dosage: UNK
     Dates: start: 20030101, end: 20060101
  2. NAPROXEN [Concomitant]
     Dosage: UNK
     Dates: start: 20050101, end: 20100101

REACTIONS (8)
  - CHOLECYSTITIS [None]
  - GENERAL PHYSICAL HEALTH DETERIORATION [None]
  - PAIN [None]
  - ANXIETY [None]
  - DEPRESSION [None]
  - EMOTIONAL DISTRESS [None]
  - BILE DUCT STONE [None]
  - INJURY [None]
